FAERS Safety Report 9139296 (Version 3)
Quarter: 2013Q2

REPORT INFORMATION
  Report Type: Spontaneous
  Country: FR (occurrence: FR)
  Receive Date: 20130305
  Receipt Date: 20130405
  Transmission Date: 20140414
  Serious: Yes (Other)
  Sender: FDA-Public Use
  Company Number: PHHY2013FR020556

PATIENT
  Age: 62 Year
  Sex: Male

DRUGS (2)
  1. EXELON PATCH [Suspect]
     Indication: AMNESTIC DISORDER
     Dosage: 1 DF (9.5 MG RIVA/ 24 HOURS), DAILY
     Route: 062
     Dates: start: 201106, end: 201207
  2. ADARTREL [Concomitant]
     Indication: PERIODIC LIMB MOVEMENT DISORDER
     Dosage: UNK UKN, UNK
     Dates: start: 201102, end: 201207

REACTIONS (2)
  - Angioedema [Recovered/Resolved]
  - Urticaria [Not Recovered/Not Resolved]
